FAERS Safety Report 8738775 (Version 3)
Quarter: 2013Q4

REPORT INFORMATION
  Report Type: Spontaneous
  Country: US (occurrence: US)
  Receive Date: 20120823
  Receipt Date: 20131105
  Transmission Date: 20140711
  Serious: Yes (Disabling)
  Sender: FDA-Public Use
  Company Number: US-MERCK-1208USA006797

PATIENT
  Sex: Female

DRUGS (4)
  1. PEGINTRON [Suspect]
     Dosage: 120 MICROGRAM, QW
     Route: 058
     Dates: start: 20120525
  2. RIBASPHERE [Suspect]
     Dosage: 200MG IN AM 400MG PM
  3. PROCRIT [Concomitant]
     Dosage: 40000 IU, QW
     Route: 058
  4. TELAPREVIR [Concomitant]
     Dosage: 750 MG, TID
     Route: 048

REACTIONS (5)
  - Anal fistula [Unknown]
  - Anorectal discomfort [Unknown]
  - Haemorrhoids [Unknown]
  - Anaemia [Unknown]
  - Adverse event [Unknown]
